FAERS Safety Report 8238197-8 (Version None)
Quarter: 2012Q1

REPORT INFORMATION
  Report Type: 
  Country: None (occurrence: None)
  Receive Date: 20120327
  Receipt Date: 20120316
  Transmission Date: 20120608
  Serious: Yes (Hospitalization)
  Sender: FDA-Public Use
  Company Number: PHHY2010TW01080

PATIENT
  Sex: Male
  Weight: 71.8 kg

DRUGS (1)
  1. ZOLEDRONOC ACID [Suspect]
     Indication: PROSTATE CANCER METASTATIC
     Dosage: 4 MG, MONTHLY
     Route: 042
     Dates: start: 20090806, end: 20110704

REACTIONS (9)
  - LUMBAR SPINAL STENOSIS [None]
  - MUSCULOSKELETAL CHEST PAIN [None]
  - PAIN [None]
  - SPINAL CORD COMPRESSION [None]
  - NEOPLASM PROGRESSION [None]
  - SPINAL OSTEOARTHRITIS [None]
  - MUSCULAR WEAKNESS [None]
  - NEOPLASM MALIGNANT [None]
  - ABASIA [None]
